FAERS Safety Report 9486526 (Version 4)
Quarter: 2016Q4

REPORT INFORMATION
  Report Type: Spontaneous
  Country: AU (occurrence: AU)
  Receive Date: 20130829
  Receipt Date: 20161003
  Transmission Date: 20170207
  Serious: Yes (Death)
  Sender: FDA-Public Use
  Company Number: AU-SANOFI-AVENTIS-2013SA079235

PATIENT
  Age: 24 Year
  Sex: Female

DRUGS (3)
  1. CYMBALTA [Suspect]
     Active Substance: DULOXETINE HYDROCHLORIDE
     Route: 065
     Dates: end: 201012
  2. STILNOX [Suspect]
     Active Substance: ZOLPIDEM TARTRATE
     Route: 065
     Dates: end: 201012
  3. ALCOHOL. [Concomitant]
     Active Substance: ALCOHOL
     Route: 065

REACTIONS (9)
  - Physical disability [Unknown]
  - Haemorrhage [Fatal]
  - Multiple injuries [Fatal]
  - Alcohol interaction [Unknown]
  - Somnambulism [Fatal]
  - Limb injury [Fatal]
  - Confusional state [Unknown]
  - Fall [Fatal]
  - Delusion [Unknown]
